FAERS Safety Report 4470770-5 (Version None)
Quarter: 2004Q4

REPORT INFORMATION
  Report Type: 
  Country: None (occurrence: None)
  Receive Date: 20041006
  Receipt Date: 20040924
  Transmission Date: 20050328
  Serious: Yes (Other)
  Sender: FDA-Public Use
  Company Number: HQWYE332527SEP04

PATIENT
  Age: 46 Year
  Sex: Female

DRUGS (2)
  1. STEDIRIL (NOREGESTREL/ETHINYL ESTRADIOL, TABLET) [Suspect]
     Indication: CONTRACEPTION
     Dosage: DAILY, ORAL
     Route: 048
  2. LEVOTHYROXINE SODIUM [Concomitant]

REACTIONS (4)
  - FOCAL NODULAR HYPERPLASIA [None]
  - HEPATIC NECROSIS [None]
  - HEPATIC NEOPLASM [None]
  - REFUSAL OF TREATMENT BY PATIENT [None]
